FAERS Safety Report 19077760 (Version 1)
Quarter: 2021Q1

REPORT INFORMATION
  Report Type: Spontaneous
  Country: CN (occurrence: CN)
  Receive Date: 20210331
  Receipt Date: 20210331
  Transmission Date: 20210420
  Serious: Yes (Other)
  Sender: FDA-Public Use
  Company Number: CN-PFIZER INC-2021302018

PATIENT
  Age: 79 Year
  Sex: Male

DRUGS (2)
  1. PIPERACILLIN/TAZOBACTAM [Suspect]
     Active Substance: PIPERACILLIN SODIUM\TAZOBACTAM SODIUM
     Indication: PNEUMONIA ESCHERICHIA
     Dosage: 4.5 G, 3X/DAY (Q8H)
     Route: 041
     Dates: start: 20191219, end: 20191221
  2. MOSAPRIDE [Concomitant]
     Active Substance: MOSAPRIDE

REACTIONS (4)
  - Cytopenia [Recovered/Resolved]
  - Anaemia [Recovered/Resolved]
  - Leukopenia [Recovered/Resolved]
  - Myelosuppression [Recovered/Resolved]
